FAERS Safety Report 25222072 (Version 1)
Quarter: 2025Q2

REPORT INFORMATION
  Report Type: Spontaneous
  Country: CN (occurrence: CN)
  Receive Date: 20250421
  Receipt Date: 20250421
  Transmission Date: 20250716
  Serious: Yes (Other)
  Sender: PFIZER
  Company Number: CN-PFIZER INC-PV202500045713

PATIENT
  Age: 4 Year
  Sex: Male
  Weight: 15.8 kg

DRUGS (7)
  1. CYTARABINE [Suspect]
     Active Substance: CYTARABINE
     Indication: Acute lymphocytic leukaemia
     Dosage: 1.34 G, 2X/DAY
     Route: 041
     Dates: start: 20250330, end: 20250331
  2. PEGASPARGASE [Suspect]
     Active Substance: PEGASPARGASE
     Indication: Acute lymphocytic leukaemia
     Dosage: 2.23 ML, 1X/DAY
     Route: 030
     Dates: start: 20250401, end: 20250401
  3. CYCLOPHOSPHAMIDE [Suspect]
     Active Substance: CYCLOPHOSPHAMIDE
     Indication: Acute lymphocytic leukaemia
     Dosage: 0.134 G, 2X/DAY
     Route: 041
     Dates: start: 20250328, end: 20250330
  4. VINCRISTINE SULFATE [Suspect]
     Active Substance: VINCRISTINE SULFATE
     Indication: Acute lymphocytic leukaemia
     Dosage: 1 ML, 1X/DAY
     Route: 042
     Dates: start: 20250401, end: 20250401
  5. SODIUM CHLORIDE [Concomitant]
     Active Substance: SODIUM CHLORIDE
     Indication: Vehicle solution use
     Dosage: 100 ML, 2X/DAY
     Route: 041
     Dates: start: 20250328, end: 20250330
  6. SODIUM CHLORIDE [Concomitant]
     Active Substance: SODIUM CHLORIDE
     Indication: Vehicle solution use
     Dosage: 3 ML, 1X/DAY
     Route: 030
     Dates: start: 20250401, end: 20250401
  7. DEXTROSE [Concomitant]
     Active Substance: DEXTROSE MONOHYDRATE
     Indication: Vehicle solution use
     Dosage: 250 ML, 2X/DAY
     Route: 041
     Dates: start: 20250330, end: 20250331

REACTIONS (1)
  - Hypertriglyceridaemia [Unknown]

NARRATIVE: CASE EVENT DATE: 20250401
